FAERS Safety Report 8349070-9 (Version None)
Quarter: 2012Q2

REPORT INFORMATION
  Report Type: 
  Country: None (occurrence: None)
  Receive Date: 20120508
  Receipt Date: 20120423
  Transmission Date: 20120825
  Serious: Yes (Death, Hospitalization)
  Sender: FDA-Public Use
  Company Number: 2012000103

PATIENT
  Age: 68 Year
  Sex: Female

DRUGS (9)
  1. DIGOXIN [Suspect]
     Indication: PRODUCT USED FOR UNKNOWN INDICATION
     Dosage: 0.125 MG, QOD, ORAL
     Route: 048
     Dates: end: 20110913
  2. FUROSEMIDE [Concomitant]
  3. SINTROM [Concomitant]
  4. REPAGLINIDE [Concomitant]
  5. BROMAZEPAM (BROMAZEPAM) [Concomitant]
  6. NEXIUM [Concomitant]
  7. ACEON [Suspect]
     Indication: HYPERTENSION
     Dosage: 5 MG, QD, ORAL
     Route: 048
     Dates: end: 20110913
  8. BISOPROLOL FUMARATE [Suspect]
     Indication: PRODUCT USED FOR UNKNOWN INDICATION
     Dosage: 5 MG, QD
     Dates: end: 20110913
  9. CRESTOR [Concomitant]

REACTIONS (11)
  - RENAL FAILURE [None]
  - BUNDLE BRANCH BLOCK RIGHT [None]
  - CARDIOGENIC SHOCK [None]
  - HEAD INJURY [None]
  - CHOLESTASIS [None]
  - JAUNDICE [None]
  - FALL [None]
  - HYPOXIA [None]
  - HYPERKALAEMIA [None]
  - OVERDOSE [None]
  - ATRIAL FIBRILLATION [None]
